FAERS Safety Report 13613020 (Version 1)
Quarter: 2017Q2

REPORT INFORMATION
  Report Type: Spontaneous
  Country: GB (occurrence: GB)
  Receive Date: 20170605
  Receipt Date: 20170605
  Transmission Date: 20170830
  Serious: Yes (Disabling)
  Sender: FDA-Public Use
  Company Number: GB-TEVA-773270ACC

PATIENT
  Age: 87 Year
  Sex: Female

DRUGS (7)
  1. BISOPROLOL [Concomitant]
     Active Substance: BISOPROLOL
     Route: 048
  2. IRBESARTAN. [Concomitant]
     Active Substance: IRBESARTAN
     Dates: start: 20140401, end: 20170403
  3. ASPIRIN. [Concomitant]
     Active Substance: ASPIRIN
  4. AMLODIPINE [Concomitant]
     Active Substance: AMLODIPINE BESYLATE
     Route: 048
  5. LAXIDO [Concomitant]
     Active Substance: POLYETHYLENE GLYCOL 3350\POTASSIUM CHLORIDE\SODIUM BICARBONATE\SODIUM CHLORIDE
     Route: 048
  6. IRBESARTAN AND HYDROCHLOROTHIAZIDE [Suspect]
     Active Substance: HYDROCHLOROTHIAZIDE\IRBESARTAN
     Indication: HYPERTENSION
     Dosage: IRBESARTAN 300MG / HYDROCHLOROTHIAZIDE 12.5MG
     Route: 048
     Dates: start: 20170403
  7. GLYCERYL TRINITRATE [Concomitant]
     Active Substance: NITROGLYCERIN

REACTIONS (1)
  - Tinnitus [Not Recovered/Not Resolved]

NARRATIVE: CASE EVENT DATE: 20170424
